FAERS Safety Report 18571561 (Version 2)
Quarter: 2020Q4

REPORT INFORMATION
  Report Type: Report from Study
  Country: US (occurrence: US)
  Receive Date: 20201202
  Receipt Date: 20201223
  Transmission Date: 20210114
  Serious: Yes (Death)
  Sender: FDA-Public Use
  Company Number: US-ALXN-A202017589

PATIENT
  Age: 64 Year
  Sex: Male

DRUGS (21)
  1. RAVULIZUMAB. [Suspect]
     Active Substance: RAVULIZUMAB
     Indication: COVID-19 TREATMENT
     Dosage: 3000 MG, UNK
     Route: 042
     Dates: start: 20201117
  2. RAVULIZUMAB. [Suspect]
     Active Substance: RAVULIZUMAB
     Dosage: 900 MG, UNK
     Route: 042
     Dates: start: 20201120
  3. DECADRON [Concomitant]
     Active Substance: DEXAMETHASONE
     Dosage: UNK
     Route: 030
  4. AZITHROMYCIN ANHYDROUS. [Concomitant]
     Active Substance: AZITHROMYCIN ANHYDROUS
     Indication: PNEUMONIA
     Dosage: 500
     Route: 042
     Dates: start: 20201113, end: 20201113
  5. LOVENOX [Concomitant]
     Active Substance: ENOXAPARIN SODIUM
     Dosage: 100 UNK, UNK
     Route: 058
     Dates: start: 20201115, end: 20201125
  6. ROCEPHIN [Concomitant]
     Active Substance: CEFTRIAXONE SODIUM
     Indication: PNEUMONIA
     Dosage: 1 UNK, UNK
     Route: 042
     Dates: start: 20201114, end: 20201114
  7. VANCOCIN [Concomitant]
     Active Substance: VANCOMYCIN HYDROCHLORIDE
     Dosage: 1000 UNK, UNK
     Route: 042
     Dates: start: 20201125, end: 20201126
  8. DECADRON [Concomitant]
     Active Substance: DEXAMETHASONE
     Indication: COVID-19
     Dosage: 6 UNK, UNK
     Route: 042
     Dates: start: 20201113, end: 20201122
  9. ZITHROMAX [Concomitant]
     Active Substance: AZITHROMYCIN DIHYDRATE
     Indication: PNEUMONIA
     Dosage: 500 UNK, UNK
     Route: 042
     Dates: start: 20201114, end: 20201116
  10. VANCOCIN [Concomitant]
     Active Substance: VANCOMYCIN HYDROCHLORIDE
     Dosage: 1250 UNK, UNK
     Route: 042
     Dates: start: 20201124, end: 20201125
  11. AMOXICILLIN. [Concomitant]
     Active Substance: AMOXICILLIN
     Indication: PROPHYLAXIS
     Dosage: 250 UNK, UNK
     Route: 050
     Dates: start: 20201119, end: 20201124
  12. AMPICILLIN+SULBACTAM [Concomitant]
     Active Substance: AMPICILLIN SODIUM\SULBACTAM SODIUM
     Indication: PNEUMONIA
     Dosage: 3 UNK, UNK
     Route: 042
     Dates: start: 20201113, end: 20201113
  13. LOVENOX [Concomitant]
     Active Substance: ENOXAPARIN SODIUM
     Indication: THROMBOSIS PROPHYLAXIS
     Dosage: 40 UNK, UNK
     Route: 058
     Dates: start: 20201114, end: 20201114
  14. LOVENOX [Concomitant]
     Active Substance: ENOXAPARIN SODIUM
     Dosage: 40 UNK, UNK
     Route: 058
     Dates: start: 20201114, end: 20201114
  15. ALBUMIN HUMAN [Concomitant]
     Active Substance: ALBUMIN HUMAN
     Indication: SHOCK
     Dosage: 12.5 UNK, UNK
     Route: 042
     Dates: start: 20201115, end: 20201115
  16. BACTROBAN [Concomitant]
     Active Substance: MUPIROCIN\MUPIROCIN CALCIUM
     Indication: INFECTION PROPHYLAXIS
     Dosage: 0.5 UNK, UNK
     Route: 045
     Dates: start: 20201116, end: 20201118
  17. AMPICILLIN [Concomitant]
     Active Substance: AMPICILLIN
     Indication: PROPHYLAXIS
     Dosage: 1 UNK, UNK
     Route: 042
     Dates: start: 20201117, end: 20201119
  18. VANCOCIN [Concomitant]
     Active Substance: VANCOMYCIN HYDROCHLORIDE
     Indication: PNEUMONIA
     Dosage: 2000 UNK, UNK
     Route: 042
     Dates: start: 20201124, end: 20201124
  19. LOVENOX [Concomitant]
     Active Substance: ENOXAPARIN SODIUM
     Dosage: 100 UNK, UNK
     Route: 058
     Dates: start: 20201115
  20. CEFEPIME [Concomitant]
     Active Substance: CEFEPIME HYDROCHLORIDE
     Indication: PROPHYLAXIS
     Dosage: 2 UNK, UNK
     Route: 042
     Dates: start: 20201124, end: 20201126
  21. OMNIPEN                            /00000501/ [Concomitant]
     Indication: PRODUCT USED FOR UNKNOWN INDICATION
     Dosage: 1 UNK, UNK
     Route: 042
     Dates: start: 20201117

REACTIONS (1)
  - Respiratory failure [Fatal]

NARRATIVE: CASE EVENT DATE: 20201126
